FAERS Safety Report 4702170-4 (Version None)
Quarter: 2005Q2

REPORT INFORMATION
  Report Type: 
  Country: None (occurrence: None)
  Receive Date: 20050629
  Receipt Date: 20050627
  Transmission Date: 20051028
  Serious: Yes (Disabling)
  Sender: FDA-Public Use
  Company Number: GB-RB-1829-2005

PATIENT
  Age: 24 Year
  Sex: Male
  Weight: 62 kg

DRUGS (4)
  1. BUPRENORPHINE HCL [Suspect]
     Indication: DRUG DEPENDENCE
     Route: 048
     Dates: start: 20050510
  2. CANNABIS [Concomitant]
     Indication: DRUG USE FOR UNKNOWN INDICATION
     Dosage: DOSAGE UNKNOWN
     Route: 065
  3. CODEINE [Concomitant]
     Indication: DRUG USE FOR UNKNOWN INDICATION
     Dosage: DOSAGE UNKNOWN
     Route: 048
  4. TRAMADOL HCL [Concomitant]
     Indication: DRUG USE FOR UNKNOWN INDICATION
     Dosage: DOSAGE UNKNOWN
     Route: 065

REACTIONS (3)
  - ANGINA PECTORIS [None]
  - DYSPNOEA [None]
  - PAIN [None]
